FAERS Safety Report 5506662-X (Version None)
Quarter: 2007Q4

REPORT INFORMATION
  Report Type: 
  Country: None (occurrence: None)
  Receive Date: 20071101
  Receipt Date: 20071016
  Transmission Date: 20080405
  Serious: Yes (Life-Threatening, Hospitalization)
  Sender: FDA-Public Use
  Company Number: 002#9#2007-00262

PATIENT
  Age: 47 Year
  Sex: Female
  Weight: 57 kg

DRUGS (30)
  1. ISOSORBIDE MONONITRATE [Suspect]
     Indication: ANGINA PECTORIS
     Dosage: 30 MG, 1 IN 1 D; ORAL
     Route: 048
     Dates: start: 20070718, end: 20070723
  2. ALPRAZOLAM [Suspect]
     Indication: DRUG USE FOR UNKNOWN INDICATION
     Dosage: ORAL
     Route: 048
     Dates: start: 20070718, end: 20070802
  3. METOPROLOL SUCCINATE [Suspect]
     Indication: ANGINA PECTORIS
     Dosage: 25MG, 1 IN 1 D; ORAL
     Route: 048
     Dates: start: 20070718, end: 20070723
  4. METOPROLOL SUCCINATE [Suspect]
     Indication: CARDIAC FAILURE CONGESTIVE
     Dosage: 25MG, 1 IN 1 D; ORAL
     Route: 048
     Dates: start: 20070718, end: 20070723
  5. METOPROLOL SUCCINATE [Suspect]
     Indication: HYPERTENSION
     Dosage: 25MG, 1 IN 1 D; ORAL
     Route: 048
     Dates: start: 20070718, end: 20070723
  6. NITROGLYCERIN [Suspect]
     Dosage: 10MCG,ASNEC; INTRAVENOUS DRIP
     Route: 041
     Dates: start: 20070719, end: 20070719
  7. CANGRELOR VS PLACEBO (CODE NOT BROKEN) INJECTION [Suspect]
     Indication: DRUG USE FOR UNKNOWN INDICATION
  8. CLOPIDOGREL [Suspect]
     Dosage: ORAL
     Route: 048
  9. HYDROMORPHONE HCL [Concomitant]
  10. MIDAZOLAM HYDROCHLORIDE [Concomitant]
  11. ONDANSETRON [Concomitant]
  12. EPTIFIBATIDE [Concomitant]
  13. PHENYLEPHRINE HYDROCHLORIDE [Concomitant]
  14. ASPIRIN [Concomitant]
  15. HEPARIN [Concomitant]
  16. LEVOSALBUTAMOL [Concomitant]
  17. MAGNESIUM SULFATE [Concomitant]
  18. PROMETHAZINE HCL [Concomitant]
  19. POTASSIUM CHLORIDE [Concomitant]
  20. NICOTINE [Concomitant]
  21. MEPERIDINE HCL [Concomitant]
  22. KETOROLAC [Concomitant]
  23. PANTOPRAZOLE SODIUM [Concomitant]
  24. SIMVASTATIN [Concomitant]
  25. CLOPIDOGREL [Concomitant]
  26. FUROSEMIDE [Concomitant]
  27. DILTIAZEM [Concomitant]
  28. PARACETAMOL [Concomitant]
  29. LIDOCAINE [Concomitant]
  30. NITROGLYCERIN [Concomitant]

REACTIONS (6)
  - ATRIOVENTRICULAR BLOCK [None]
  - BLOOD PRESSURE SYSTOLIC DECREASED [None]
  - CARDIAC ARREST [None]
  - HYPOTENSION [None]
  - NAUSEA [None]
  - VENTRICULAR EXTRASYSTOLES [None]
